FAERS Safety Report 5498472-7 (Version None)
Quarter: 2007Q4

REPORT INFORMATION
  Report Type: 
  Country: None (occurrence: None)
  Receive Date: 20071024
  Receipt Date: 20071012
  Transmission Date: 20080405
  Serious: Yes (Hospitalization, Other)
  Sender: FDA-Public Use
  Company Number: 2007AP001145

PATIENT
  Age: 20 Year
  Sex: Male

DRUGS (9)
  1. MEGESTROL ACETATE [Suspect]
     Indication: CACHEXIA
     Dosage: 600 MG; QD;
  2. FLUCONAZOLE [Concomitant]
  3. TRIMETHOPRIM [Concomitant]
  4. SULFAMETHOXAZOLE [Concomitant]
  5. MORPHINE [Concomitant]
  6. METHOTREXATE [Concomitant]
  7. GEMCITABINE [Concomitant]
  8. DOXORUBICIN HCL [Concomitant]
  9. IFOSFAMIDE [Concomitant]

REACTIONS (14)
  - ADRENAL INSUFFICIENCY [None]
  - ANDROGEN DEFICIENCY [None]
  - CANDIDIASIS [None]
  - ERYTHEMA [None]
  - FULL BLOOD COUNT DECREASED [None]
  - HAEMOGLOBIN DECREASED [None]
  - HEART RATE INCREASED [None]
  - HYPOALBUMINAEMIA [None]
  - HYPONATRAEMIA [None]
  - INFECTION [None]
  - PALLOR [None]
  - PITTING OEDEMA [None]
  - PLATELET COUNT DECREASED [None]
  - PROCEDURAL SITE REACTION [None]
